FAERS Safety Report 18329674 (Version 2)
Quarter: 2020Q4

REPORT INFORMATION
  Report Type: Report from Study
  Country: FR (occurrence: FR)
  Receive Date: 20200930
  Receipt Date: 20201022
  Transmission Date: 20210113
  Serious: Yes (Hospitalization, Other)
  Sender: FDA-Public Use
  Company Number: FR-BRISTOL-MYERS SQUIBB COMPANY-BMS-2020-078662

PATIENT
  Age: 70 Year
  Sex: Male

DRUGS (6)
  1. IPILIMUMAB [Suspect]
     Active Substance: IPILIMUMAB
     Dosage: 76 UNK
     Route: 065
     Dates: start: 20201001
  2. NIVOLUMAB [Suspect]
     Active Substance: NIVOLUMAB
     Indication: ADENOCARCINOMA GASTRIC
     Dosage: 240 MILLIGRAM
     Route: 065
     Dates: start: 20200917, end: 20200917
  3. ESOMEPRAZOLE. [Concomitant]
     Active Substance: ESOMEPRAZOLE MAGNESIUM
     Indication: PRODUCT USED FOR UNKNOWN INDICATION
     Route: 065
  4. IPILIMUMAB [Suspect]
     Active Substance: IPILIMUMAB
     Indication: ADENOCARCINOMA GASTRIC
     Dosage: 76 MILLIGRAM
     Route: 065
     Dates: start: 20200917, end: 20200917
  5. NIVOLUMAB [Suspect]
     Active Substance: NIVOLUMAB
     Dosage: 240 UNK
     Route: 065
     Dates: start: 20201001
  6. INNOHEP [Concomitant]
     Active Substance: TINZAPARIN SODIUM
     Indication: PRODUCT USED FOR UNKNOWN INDICATION
     Route: 065

REACTIONS (1)
  - Haemorrhage [Recovered/Resolved]

NARRATIVE: CASE EVENT DATE: 20200921
